FAERS Safety Report 4958959-X (Version None)
Quarter: 2006Q1

REPORT INFORMATION
  Report Type: 
  Country: None (occurrence: None)
  Receive Date: 20060331
  Receipt Date: 20060320
  Transmission Date: 20060701
  Serious: Yes (Death, Hospitalization)
  Sender: FDA-Public Use
  Company Number: TR-KINGPHARMUSA00001-K200600363

PATIENT
  Age: 40 Year
  Sex: Male

DRUGS (1)
  1. SEPTRA [Suspect]
     Indication: PYREXIA
     Dosage: 480 MG, BID
     Route: 048

REACTIONS (14)
  - BONE MARROW FAILURE [None]
  - DERMATITIS EXFOLIATIVE [None]
  - ESCHERICHIA BACTERAEMIA [None]
  - FATIGUE [None]
  - FEBRILE NEUTROPENIA [None]
  - HAEMATOCRIT DECREASED [None]
  - HAEMOGLOBIN DECREASED [None]
  - HEPATIC ENZYME INCREASED [None]
  - NEPHROLITHIASIS [None]
  - ORAL CANDIDIASIS [None]
  - PYREXIA [None]
  - RASH ERYTHEMATOUS [None]
  - SKIN EXFOLIATION [None]
  - THROMBOCYTOPENIA [None]
